FAERS Safety Report 15347609 (Version 1)
Quarter: 2018Q3

REPORT INFORMATION
  Report Type: Spontaneous
  Country: US (occurrence: US)
  Receive Date: 20180904
  Receipt Date: 20180904
  Transmission Date: 20181010
  Serious: Yes (Other)
  Sender: FDA-Public Use
  Company Number: US-SA-2018SA235384

PATIENT
  Age: 54 Year
  Sex: Female
  Weight: 59.9 kg

DRUGS (19)
  1. HERCEPTIN [Concomitant]
     Active Substance: TRASTUZUMAB
     Indication: PRODUCT USED FOR UNKNOWN INDICATION
     Route: 065
  2. BENADRYL [Concomitant]
     Active Substance: DIPHENHYDRAMINE HYDROCHLORIDE
     Indication: PRODUCT USED FOR UNKNOWN INDICATION
     Dosage: 25 UNK
     Route: 065
     Dates: start: 20071231
  3. TAXOTERE [Suspect]
     Active Substance: DOCETAXEL
     Indication: BREAST CANCER FEMALE
     Dosage: 45 MG, Q3W
     Route: 042
     Dates: start: 20071204, end: 20071204
  4. TAXOTERE [Suspect]
     Active Substance: DOCETAXEL
     Dosage: 45 MG, Q3W
     Route: 042
     Dates: start: 20080212, end: 20080212
  5. ALOXI [Concomitant]
     Active Substance: PALONOSETRON HYDROCHLORIDE
     Dosage: 0.25 UNK
     Route: 065
     Dates: start: 20071023
  6. EMEND [APREPITANT] [Concomitant]
     Indication: PRODUCT USED FOR UNKNOWN INDICATION
     Dosage: 125 MG
     Route: 048
     Dates: start: 20071113
  7. CYTOXAN [Concomitant]
     Active Substance: CYCLOPHOSPHAMIDE
     Indication: PRODUCT USED FOR UNKNOWN INDICATION
     Dosage: UNK
     Route: 065
     Dates: start: 20071113
  8. PARAPLATIN [Concomitant]
     Active Substance: CARBOPLATIN
     Indication: PRODUCT USED FOR UNKNOWN INDICATION
     Route: 065
  9. DOXORUBICIN [Concomitant]
     Active Substance: DOXORUBICIN
     Indication: PRODUCT USED FOR UNKNOWN INDICATION
     Route: 065
  10. DECADRON [DEXAMETHASONE] [Concomitant]
     Dosage: 20 UNK
     Route: 042
     Dates: start: 20070925
  11. ALOXI [Concomitant]
     Active Substance: PALONOSETRON HYDROCHLORIDE
     Dosage: 0.25 UNK
     Route: 065
     Dates: start: 20070925
  12. DECADRON [DEXAMETHASONE] [Concomitant]
     Dosage: 15 MG
     Route: 065
     Dates: start: 20080212
  13. DECADRON [DEXAMETHASONE] [Concomitant]
     Dosage: 20 UNK
     Route: 065
     Dates: start: 20071113
  14. DARBEPOETIN ALFA [Concomitant]
     Active Substance: DARBEPOETIN ALFA
     Indication: PRODUCT USED FOR UNKNOWN INDICATION
     Dosage: UNK
     Route: 058
     Dates: start: 20070925
  15. ALOXI [Concomitant]
     Active Substance: PALONOSETRON HYDROCHLORIDE
     Indication: PRODUCT USED FOR UNKNOWN INDICATION
     Dosage: 0.25 MG
     Route: 065
     Dates: start: 20071113
  16. BENADRYL [Concomitant]
     Active Substance: DIPHENHYDRAMINE HYDROCHLORIDE
     Dosage: 25 MG
     Route: 065
     Dates: start: 20080212
  17. DECADRON [DEXAMETHASONE] [Concomitant]
     Indication: PRODUCT USED FOR UNKNOWN INDICATION
     Dosage: 15 UNK
     Route: 065
     Dates: start: 20071231
  18. DECADRON [DEXAMETHASONE] [Concomitant]
     Dosage: 20 UNK
     Route: 042
     Dates: start: 20071023
  19. EMEND [APREPITANT] [Concomitant]
     Dosage: 125 UNK
     Route: 048
     Dates: start: 20071023

REACTIONS (2)
  - Psychological trauma [Unknown]
  - Alopecia [Not Recovered/Not Resolved]

NARRATIVE: CASE EVENT DATE: 200801
